FAERS Safety Report 6709976-0 (Version None)
Quarter: 2010Q2

REPORT INFORMATION
  Report Type: 
  Country: None (occurrence: None)
  Receive Date: 20100429
  Receipt Date: 20100414
  Transmission Date: 20101027
  Serious: Yes (Life-Threatening, Hospitalization)
  Sender: FDA-Public Use
  Company Number: 2010001385

PATIENT
  Age: 58 Year
  Sex: Male

DRUGS (7)
  1. TARCEVA [Suspect]
     Indication: NON-SMALL CELL LUNG CANCER
     Dosage: 150 MG, QD, ORAL
     Route: 048
  2. TELMISARTAN [Concomitant]
  3. LEVOTHYROXINE SODIUM [Concomitant]
  4. HYPOGLYCEMIC NOS [Concomitant]
  5. ATIVAN [Concomitant]
  6. GABAPENTIN [Concomitant]
  7. PHENYTOIN [Concomitant]

REACTIONS (4)
  - DYSPHAGIA [None]
  - PYREXIA [None]
  - RASH [None]
  - STOMATITIS [None]
